FAERS Safety Report 19911824 (Version 1)
Quarter: 2021Q4

REPORT INFORMATION
  Report Type: Spontaneous
  Country: US (occurrence: US)
  Receive Date: 20211001
  Receipt Date: 20211001
  Transmission Date: 20220303
  Serious: No
  Sender: FDA-Public Use
  Company Number: None

PATIENT
  Age: 45 Year
  Sex: Female

DRUGS (4)
  1. ICATIBANT ACETATE [Suspect]
     Active Substance: ICATIBANT ACETATE
     Indication: Complement deficiency disease
     Route: 058
     Dates: start: 20210819
  2. ICATIBANT ACETATE [Concomitant]
     Active Substance: ICATIBANT ACETATE
  3. TAKHZYRO [Concomitant]
     Active Substance: LANADELUMAB-FLYO
  4. BERINERT [Concomitant]
     Active Substance: HUMAN C1-ESTERASE INHIBITOR

REACTIONS (3)
  - Abdominal distension [None]
  - Swelling [None]
  - Adverse event [None]

NARRATIVE: CASE EVENT DATE: 20210821
